FAERS Safety Report 10531624 (Version 2)
Quarter: 2015Q2

REPORT INFORMATION
  Report Type: Spontaneous
  Country: JP (occurrence: JP)
  Receive Date: 20141021
  Receipt Date: 20150403
  Transmission Date: 20150821
  Serious: Yes (Other)
  Sender: FDA-Public Use
  Company Number: JP-PFIZER INC-2014283657

PATIENT
  Age: 64 Year
  Sex: Male
  Weight: 87 kg

DRUGS (11)
  1. SUGLAT [Suspect]
     Active Substance: IPRAGLIFLOZIN L-PROLINE
     Dosage: 50 MG, DAILY
     Route: 048
     Dates: start: 20140502, end: 20141010
  2. LANTUS [Concomitant]
     Active Substance: INSULIN GLARGINE
     Dosage: 35 IU, 1X/DAY
     Route: 058
  3. GLACTIV [Concomitant]
     Active Substance: SITAGLIPTIN
     Dosage: 50 MG, 1X/DAY
     Route: 048
     Dates: start: 20110813, end: 20141010
  4. METGLUCO [Concomitant]
     Active Substance: METFORMIN HYDROCHLORIDE
     Dosage: 500 MG, 1X/DAY
     Route: 048
     Dates: start: 20110507, end: 20141010
  5. EPAFIEL [Concomitant]
     Dosage: 6 DF, 3X/DAY
     Route: 048
     Dates: start: 20030418
  6. NOVORAPID [Concomitant]
     Active Substance: INSULIN ASPART
     Dosage: 45 IU, 2X/DAY
     Route: 058
  7. BERAPROST NA [Concomitant]
     Dosage: 60 ?G, 3X/DAY
     Route: 048
     Dates: start: 20030418
  8. CADUET [Concomitant]
     Active Substance: AMLODIPINE BESYLATE\ATORVASTATIN CALCIUM
     Dosage: 1 TABLET, 1X/DAY
     Route: 048
     Dates: start: 20110813
  9. BISOPROLOL FUMARATE. [Concomitant]
     Active Substance: BISOPROLOL FUMARATE
     Dosage: 5 MG, 1X/DAY
     Route: 048
     Dates: start: 20110813
  10. METACT HD [Concomitant]
     Dosage: 1 TABLET, 1X/DAY
     Route: 048
     Dates: start: 20140910
  11. TALION OD [Concomitant]
     Dosage: 20 MG, 2X/DAY
     Route: 048
     Dates: start: 20131012

REACTIONS (1)
  - Cerebral infarction [Recovering/Resolving]

NARRATIVE: CASE EVENT DATE: 20141007
